FAERS Safety Report 8041568-6 (Version None)
Quarter: 2012Q1

REPORT INFORMATION
  Report Type: 
  Country: None (occurrence: None)
  Receive Date: 20120109
  Receipt Date: 20101230
  Transmission Date: 20120608
  Serious: No
  Sender: FDA-Public Use
  Company Number: 2010SP066752

PATIENT
  Age: 20 Year
  Sex: Female

DRUGS (1)
  1. IMPLANON [Suspect]
     Indication: CONTRACEPTION
     Dates: start: 20090101

REACTIONS (2)
  - DEVICE DISLOCATION [None]
  - MEDICAL DEVICE COMPLICATION [None]
